FAERS Safety Report 8409545-0 (Version None)
Quarter: 2012Q2

REPORT INFORMATION
  Report Type: 
  Country: None (occurrence: None)
  Receive Date: 20120529
  Receipt Date: 20050712
  Transmission Date: 20120825
  Serious: Yes (Other)
  Sender: FDA-Public Use
  Company Number: JP-2012-12709

PATIENT
  Age: 85 Year

DRUGS (4)
  1. VITAMIN D (COLECALCIFEROL) [Concomitant]
  2. MENECIT (CARBIDOPA, LEVODOPA) [Concomitant]
  3. PLETAL [Suspect]
  4. KETAS (IBUDILAST) [Concomitant]

REACTIONS (2)
  - LOSS OF CONSCIOUSNESS [None]
  - HYPOTENSION [None]
